FAERS Safety Report 23617642 (Version 1)
Quarter: 2024Q1

REPORT INFORMATION
  Report Type: Spontaneous
  Country: US (occurrence: None)
  Receive Date: 20240310
  Receipt Date: 20240310
  Transmission Date: 20240410
  Serious: Yes (Disabling, Other)
  Sender: FDA-Public Use
  Company Number: None

PATIENT
  Age: 72 Year
  Sex: Female
  Weight: 67.5 kg

DRUGS (10)
  1. BRILINTA [Suspect]
     Active Substance: TICAGRELOR
     Indication: Atrioventricular block
     Dosage: OTHER QUANTITY : 1 TABLET(S);?FREQUENCY : TWICE A DAY;?
     Route: 048
     Dates: end: 20240308
  2. RANOLAZINE [Concomitant]
     Active Substance: RANOLAZINE
  3. VALSARTAN [Concomitant]
     Active Substance: VALSARTAN
  4. AMLODIPINE BESYLATE [Concomitant]
     Active Substance: AMLODIPINE BESYLATE
  5. PANTOPRAZOLE [Concomitant]
     Active Substance: PANTOPRAZOLE
  6. VRAYLAR [Concomitant]
     Active Substance: CARIPRAZINE
  7. lamotigene [Concomitant]
  8. ROSUVASTATIN [Concomitant]
     Active Substance: ROSUVASTATIN
  9. Isosot ice mononitrate [Concomitant]
  10. ASPIRIN [Concomitant]
     Active Substance: ASPIRIN

REACTIONS (5)
  - Dyspnoea [None]
  - Anxiety [None]
  - Therapy cessation [None]
  - Decreased activity [None]
  - Drug ineffective [None]

NARRATIVE: CASE EVENT DATE: 20240127
